FAERS Safety Report 7772166-7 (Version None)
Quarter: 2011Q3

REPORT INFORMATION
  Report Type: 
  Country: None (occurrence: None)
  Receive Date: 20110922
  Receipt Date: 20110228
  Transmission Date: 20111222
  Serious: No
  Sender: FDA-Public Use
  Company Number: US-ASTRAZENECA-2011SE11116

PATIENT
  Age: 45 Year
  Sex: Female
  Weight: 97.5 kg

DRUGS (7)
  1. SEROQUEL [Suspect]
     Route: 048
     Dates: start: 20101101
  2. DIAZEPAM [Concomitant]
  3. LORCET-HD [Concomitant]
  4. LAMICTAL [Concomitant]
  5. SEROQUEL [Suspect]
     Indication: DEPRESSION
     Route: 048
     Dates: start: 20101101, end: 20110221
  6. SEROQUEL [Suspect]
     Indication: BIPOLAR DISORDER
     Route: 048
     Dates: start: 20101101, end: 20110221
  7. SEROQUEL [Suspect]
     Route: 048
     Dates: start: 20101101

REACTIONS (11)
  - HEAD INJURY [None]
  - CONTUSION [None]
  - FALL [None]
  - HYPERSOMNIA [None]
  - SPEECH DISORDER [None]
  - DRUG DOSE OMISSION [None]
  - ABNORMAL BEHAVIOUR [None]
  - MEMORY IMPAIRMENT [None]
  - DISORIENTATION [None]
  - MOBILITY DECREASED [None]
  - FEELING ABNORMAL [None]
